FAERS Safety Report 7768950-6 (Version None)
Quarter: 2011Q3

REPORT INFORMATION
  Report Type: 
  Country: None (occurrence: None)
  Receive Date: 20110922
  Receipt Date: 20110701
  Transmission Date: 20111222
  Serious: No
  Sender: FDA-Public Use
  Company Number: US-ASTRAZENECA-2011SE40129

PATIENT
  Age: 39 Year
  Sex: Female

DRUGS (5)
  1. SEROQUEL XR [Suspect]
     Indication: PANIC ATTACK
     Route: 048
  2. SEROQUEL XR [Suspect]
     Indication: HALLUCINATION
     Route: 048
  3. PRISTIQ [Concomitant]
  4. SEROQUEL XR [Suspect]
     Indication: DEPRESSION
     Route: 048
  5. SEROQUEL XR [Suspect]
     Indication: ANXIETY
     Route: 048

REACTIONS (4)
  - DRUG DOSE OMISSION [None]
  - TACHYPHRENIA [None]
  - INSOMNIA [None]
  - DRUG PRESCRIBING ERROR [None]
